FAERS Safety Report 14439484 (Version 3)
Quarter: 2018Q2

REPORT INFORMATION
  Report Type: Spontaneous
  Country: BR (occurrence: BR)
  Receive Date: 20180125
  Receipt Date: 20180528
  Transmission Date: 20180711
  Serious: Yes (Life-Threatening, Hospitalization, Other)
  Sender: FDA-Public Use
  Company Number: BR-B.I. PHARMACEUTICALS,INC./RIDGEFIELD-2018-BI-004354

PATIENT
  Age: 58 Year
  Sex: Female
  Weight: 98 kg

DRUGS (5)
  1. SINVASTATINA [Concomitant]
     Active Substance: SIMVASTATIN
     Indication: BLOOD CHOLESTEROL INCREASED
  2. MICARDIS HCT [Suspect]
     Active Substance: HYDROCHLOROTHIAZIDE\TELMISARTAN
     Indication: HYPERTENSION
     Dosage: STRENGTH AND DAILY DOSE: 80/12,5 MG
     Route: 048
     Dates: start: 2013, end: 20141009
  3. MICARDIS HCT [Suspect]
     Active Substance: HYDROCHLOROTHIAZIDE\TELMISARTAN
     Dosage: STRENGTH AND DAILY DOSE: 80/12,5 MG
     Route: 048
     Dates: start: 201412
  4. SINVASTATINA [Concomitant]
     Active Substance: SIMVASTATIN
     Indication: PROPHYLAXIS
     Route: 048
     Dates: start: 201504
  5. PREDNISONA [Concomitant]
     Active Substance: PREDNISONE
     Indication: HORMONE REPLACEMENT THERAPY
     Route: 048
     Dates: start: 201504

REACTIONS (10)
  - Thrombosis [Unknown]
  - Peripheral swelling [Not Recovered/Not Resolved]
  - Bacteriuria [Recovered/Resolved]
  - Thrombosis [Not Recovered/Not Resolved]
  - Depression [Recovered/Resolved]
  - Vomiting [Recovered/Resolved]
  - Panic disorder [Recovered/Resolved]
  - Asthenia [Recovered/Resolved]
  - Pituitary tumour benign [Recovered/Resolved]
  - Blindness [Recovered/Resolved]

NARRATIVE: CASE EVENT DATE: 2014
